FAERS Safety Report 6118952-0 (Version None)
Quarter: 2009Q1

REPORT INFORMATION
  Report Type: 
  Country: None (occurrence: None)
  Receive Date: 20090316
  Receipt Date: 20090212
  Transmission Date: 20090719
  Serious: No
  Sender: FDA-Public Use
  Company Number: US-BAYER-200913538NA

PATIENT
  Sex: Female

DRUGS (1)
  1. AVELOX [Suspect]
     Indication: PNEUMONIA

REACTIONS (3)
  - HEADACHE [None]
  - RED BLOOD CELL SEDIMENTATION RATE INCREASED [None]
  - VISUAL IMPAIRMENT [None]
